FAERS Safety Report 8774444 (Version 2)
Quarter: 2012Q4

REPORT INFORMATION
  Report Type: 
  Country: US (occurrence: US)
  Receive Date: 20120907
  Receipt Date: 20120910
  Transmission Date: 20130627
  Serious: Yes (Other)
  Sender: FDA-Public Use
  Company Number: US-PFIZER INC-2012219373

PATIENT
  Age: 29 Year
  Sex: Female
  Weight: 72 kg

DRUGS (6)
  1. CHANTIX [Suspect]
     Indication: SMOKING CESSATION THERAPY
     Dosage: 0.5 mg daily
     Route: 048
     Dates: start: 20120830, end: 2012
  2. CHANTIX [Suspect]
     Dosage: 0.5 mg, 2x/day
     Route: 048
     Dates: start: 2012
  3. ZOLOFT [Suspect]
     Indication: DEPRESSION
     Dosage: 100 mg, daily (in morning)
  4. NAPROXEN [Concomitant]
     Indication: BACK PAIN
     Dosage: 500 mg, 2x/day
  5. ADDERALL [Concomitant]
     Indication: SLEEP APNOEA SYNDROME
     Dosage: 20 mg, daily
  6. LOSARTAN [Concomitant]
     Indication: HYPERTENSION
     Dosage: 50 mg, daily

REACTIONS (4)
  - Depression [Unknown]
  - Abdominal pain upper [Not Recovered/Not Resolved]
  - Nausea [Not Recovered/Not Resolved]
  - Flushing [Not Recovered/Not Resolved]
